FAERS Safety Report 9264796 (Version 1)
Quarter: 2013Q2

REPORT INFORMATION
  Report Type: Spontaneous
  Country: US (occurrence: None)
  Receive Date: 20130429
  Receipt Date: 20130429
  Transmission Date: 20140414
  Serious: Yes (Other)
  Sender: FDA-Public Use
  Company Number: None

PATIENT
  Age: 37 Year
  Sex: Female
  Weight: 63.5 kg

DRUGS (2)
  1. CIPROFLOXACIN [Suspect]
     Indication: KIDNEY INFECTION
     Dosage: 250 MG 2 X DAY PO
     Route: 048
     Dates: start: 20130417, end: 20130420
  2. CIPROFLOXACIN [Suspect]
     Indication: URINARY TRACT INFECTION
     Dosage: 250 MG 2 X DAY PO
     Route: 048
     Dates: start: 20130417, end: 20130420

REACTIONS (2)
  - Burning sensation [None]
  - Feeling hot [None]
